FAERS Safety Report 16246065 (Version 11)
Quarter: 2019Q3

REPORT INFORMATION
  Report Type: Report from Study
  Country: US (occurrence: US)
  Receive Date: 20190426
  Receipt Date: 20190926
  Transmission Date: 20191004
  Serious: Yes (Hospitalization)
  Sender: FDA-Public Use
  Company Number: US-ACTELION-A-US2018-181547

PATIENT
  Age: 56 Year
  Sex: Female
  Weight: 108.39 kg

DRUGS (7)
  1. VELETRI [Suspect]
     Active Substance: EPOPROSTENOL
     Dosage: 30 NG/KG, PER MIN
     Route: 042
  2. VELETRI [Suspect]
     Active Substance: EPOPROSTENOL
     Dosage: 20 NG/KG, PER MIN
     Route: 042
  3. VELETRI [Suspect]
     Active Substance: EPOPROSTENOL
     Dosage: 22 NG/KG, PER MIN
     Route: 042
  4. ADEMPAS [Concomitant]
     Active Substance: RIOCIGUAT
  5. VELETRI [Suspect]
     Active Substance: EPOPROSTENOL
     Indication: PULMONARY ARTERIAL HYPERTENSION
     Dosage: 30 NG/KG, PER MIN
     Route: 042
  6. OPSUMIT [Suspect]
     Active Substance: MACITENTAN
     Indication: PULMONARY ARTERIAL HYPERTENSION
     Dosage: 10 MG, QD
     Route: 048
     Dates: start: 20180629
  7. DILTIAZEM. [Concomitant]
     Active Substance: DILTIAZEM

REACTIONS (42)
  - Pain in jaw [Unknown]
  - Catheter site pain [Not Recovered/Not Resolved]
  - Catheter site discharge [Unknown]
  - Abdominal distension [Unknown]
  - Tonsillar inflammation [Unknown]
  - Eye pain [Unknown]
  - Wheezing [Unknown]
  - Cough [Unknown]
  - Back pain [Unknown]
  - Crepitations [Unknown]
  - Abdominal pain upper [Unknown]
  - Pain in extremity [Unknown]
  - Lower respiratory tract infection [Unknown]
  - Fatigue [Unknown]
  - Peripheral swelling [Not Recovered/Not Resolved]
  - Device dislocation [Unknown]
  - Dyspnoea [Recovering/Resolving]
  - Arthralgia [Unknown]
  - Rhinorrhoea [Unknown]
  - Oxygen saturation decreased [Unknown]
  - Dyspnoea exertional [Not Recovered/Not Resolved]
  - Schizophrenia [Unknown]
  - Catheter placement [Unknown]
  - Catheter site pruritus [Unknown]
  - Pharyngitis [Unknown]
  - Bronchitis [Recovering/Resolving]
  - Headache [Unknown]
  - Pruritus [Unknown]
  - Device occlusion [Unknown]
  - Fluid retention [Unknown]
  - Nasal congestion [Unknown]
  - Sputum discoloured [Unknown]
  - Pulmonary arterial hypertension [Unknown]
  - Oropharyngeal pain [Unknown]
  - Device leakage [Unknown]
  - Catheter site erythema [Unknown]
  - Palpitations [Unknown]
  - Malaise [Unknown]
  - Nausea [Unknown]
  - Epistaxis [Unknown]
  - Respiratory tract congestion [Unknown]
  - Sinus congestion [Unknown]

NARRATIVE: CASE EVENT DATE: 20190419
